FAERS Safety Report 7044563-9 (Version None)
Quarter: 2010Q4

REPORT INFORMATION
  Report Type: 
  Country: None (occurrence: None)
  Receive Date: 20101014
  Receipt Date: 20101003
  Transmission Date: 20110411
  Serious: Yes (Other)
  Sender: FDA-Public Use
  Company Number: DZ-NOVOPROD-315151

PATIENT
  Sex: Female
  Weight: 62 kg

DRUGS (6)
  1. METFORMIN [Suspect]
     Indication: TYPE 2 DIABETES MELLITUS
     Dosage: 200 MG, QD
     Route: 048
     Dates: start: 20100510
  2. INSULIN DETEMIR FLEXPEN [Suspect]
     Indication: TYPE 2 DIABETES MELLITUS
     Dosage: 28 IU, QD
     Route: 058
     Dates: start: 20100530
  3. ASPEGIC 325 [Concomitant]
     Dosage: 100 MG, QD
     Dates: start: 20080101
  4. ERCEFURYL [Concomitant]
     Indication: DIARRHOEA
     Dosage: 2 UNK, UNK
     Dates: start: 20080101
  5. CIPROFLOXACIN HCL [Concomitant]
     Dosage: UNK
     Dates: start: 20100718, end: 20100803
  6. DIFLUCAN [Concomitant]
     Dosage: UNK
     Dates: start: 20100718, end: 20100803

REACTIONS (1)
  - WEIGHT DECREASED [None]
